FAERS Safety Report 7412436-5 (Version None)
Quarter: 2011Q2

REPORT INFORMATION
  Report Type: 
  Country: None (occurrence: None)
  Receive Date: 20110413
  Receipt Date: 20110408
  Transmission Date: 20111010
  Serious: Yes (Death, Hospitalization, Other)
  Sender: FDA-Public Use
  Company Number: PHHY2011DE13147

PATIENT
  Sex: Male
  Weight: 85.5 kg

DRUGS (7)
  1. BISOPROLOL FUMARATE [Concomitant]
     Indication: HYPERTENSION
     Dosage: 5 MG, DAILY
     Route: 048
     Dates: start: 20100715
  2. AFINITOR [Suspect]
     Indication: RENAL CELL CARCINOMA
     Dosage: 10 MG, PER DAY
     Route: 048
     Dates: start: 20110206, end: 20110213
  3. CONCOR [Concomitant]
     Indication: HYPERTENSION
     Dosage: 5 MG, PER DAY
     Route: 048
     Dates: start: 20110214
  4. AFINITOR [Suspect]
     Dosage: 5 MG PER DAY
     Route: 048
     Dates: start: 20110228, end: 20110306
  5. FORTECORTIN [Concomitant]
     Indication: METASTASES TO CENTRAL NERVOUS SYSTEM
     Dosage: 8 MG,PER DAY
     Route: 048
     Dates: start: 20110104
  6. RAMIPRIL [Concomitant]
     Indication: HYPERTENSION
     Dosage: 2.5 MG, DAILY
     Route: 048
     Dates: start: 20100922
  7. PANTOZOL [Concomitant]
     Indication: GASTRITIS PROPHYLAXIS
     Dosage: 80 MG, PER DAY
     Route: 048
     Dates: start: 20100922

REACTIONS (4)
  - NEOPLASM MALIGNANT [None]
  - DRUG INTOLERANCE [None]
  - FATIGUE [None]
  - SUPRAVENTRICULAR TACHYCARDIA [None]
